FAERS Safety Report 7076131-7 (Version None)
Quarter: 2010Q4

REPORT INFORMATION
  Report Type: 
  Country: None (occurrence: None)
  Receive Date: 20101021
  Receipt Date: 20101007
  Transmission Date: 20110411
  Serious: Yes (Hospitalization)
  Sender: FDA-Public Use
  Company Number: 2010MA003426

PATIENT
  Age: 33 Year
  Sex: Female

DRUGS (3)
  1. DIAZEPAM [Suspect]
     Indication: DEPRESSION
     Dosage: 10 MG;TID
  2. CITALOPRAM HYDROBROMIDE [Concomitant]
  3. LORMETAZEPAM (LORMETAZEPAM) [Suspect]
     Indication: DEPRESSION
     Dosage: 2 MG; QD

REACTIONS (34)
  - ACTIVITIES OF DAILY LIVING IMPAIRED [None]
  - ANXIETY [None]
  - DECREASED APPETITE [None]
  - DEPRESSION [None]
  - DISORIENTATION [None]
  - DIZZINESS [None]
  - DRUG ABUSE [None]
  - DRUG DEPENDENCE [None]
  - DRUG WITHDRAWAL SYNDROME [None]
  - DYSARTHRIA [None]
  - DYSTHYMIC DISORDER [None]
  - EYELID PTOSIS [None]
  - FATIGUE [None]
  - GAIT DISTURBANCE [None]
  - HYPERHIDROSIS [None]
  - HYPERPHAGIA [None]
  - HYPOTONIA [None]
  - INFLUENZA LIKE ILLNESS [None]
  - INSOMNIA [None]
  - IRRITABILITY [None]
  - MIOSIS [None]
  - MOOD ALTERED [None]
  - MOVEMENT DISORDER [None]
  - PALPITATIONS [None]
  - PARAESTHESIA [None]
  - PHOTOPHOBIA [None]
  - PSYCHOMOTOR RETARDATION [None]
  - PUPILLARY REFLEX IMPAIRED [None]
  - SEDATION [None]
  - SINUS TACHYCARDIA [None]
  - SOCIAL PROBLEM [None]
  - SOMNOLENCE [None]
  - SUICIDAL IDEATION [None]
  - TACHYARRHYTHMIA [None]
